FAERS Safety Report 18525346 (Version 1)
Quarter: 2020Q4

REPORT INFORMATION
  Report Type: Spontaneous
  Country: US (occurrence: US)
  Receive Date: 20201119
  Receipt Date: 20201119
  Transmission Date: 20210114
  Serious: Yes (Congenital Anomaly)
  Sender: FDA-Public Use
  Company Number: US-BIOMARINAP-US-2020-133328

PATIENT
  Age: 16 Year
  Sex: Male
  Weight: 28.8 kg

DRUGS (1)
  1. VIMIZIM [Suspect]
     Active Substance: ELOSULFASE ALFA
     Indication: MUCOPOLYSACCHARIDOSIS IV
     Dosage: 55 MG, QW
     Route: 042
     Dates: start: 20140609

REACTIONS (1)
  - Gait disturbance [Recovered/Resolved]
